FAERS Safety Report 6108601-X (Version None)
Quarter: 2009Q1

REPORT INFORMATION
  Report Type: 
  Country: None (occurrence: None)
  Receive Date: 20090305
  Receipt Date: 20090303
  Transmission Date: 20090719
  Serious: Yes (Hospitalization)
  Sender: FDA-Public Use
  Company Number: GXKR2009DE02529

PATIENT
  Age: 76 Year
  Sex: Male
  Weight: 73 kg

DRUGS (8)
  1. BISOPROLOL (NGX) (BISOPROLOL) TABLET, 5MG [Suspect]
     Indication: HYPERTENSION
     Dosage: 2.5 MG, QD
  2. SPIRONOLACTONE [Suspect]
     Indication: OEDEMA
     Dosage: 12.5 MG, QD, ORAL
     Route: 048
     Dates: end: 20081117
  3. ACETYLSALICYLIC ACID SRT [Concomitant]
  4. ATACAND [Concomitant]
  5. DIGITOXIN INJ [Concomitant]
  6. INEGY  (EZETIMIBE, SIMVASTATIN) [Concomitant]
  7. OMEPRAZOLE [Concomitant]
  8. TORSEMIDE [Concomitant]

REACTIONS (6)
  - ATRIAL FIBRILLATION [None]
  - BRADYARRHYTHMIA [None]
  - DYSPNOEA [None]
  - HYPERKALAEMIA [None]
  - LOSS OF CONSCIOUSNESS [None]
  - MALAISE [None]
